FAERS Safety Report 10622078 (Version 1)
Quarter: 2014Q4

REPORT INFORMATION
  Report Type: Spontaneous
  Country: US (occurrence: None)
  Receive Date: 20141201
  Receipt Date: 20141201
  Transmission Date: 20150529
  Serious: Yes (Other)
  Sender: FDA-Public Use
  Company Number: None

PATIENT
  Age: 73 Year
  Sex: Male

DRUGS (1)
  1. ZYTIGA [Suspect]
     Active Substance: ABIRATERONE ACETATE
     Indication: PROSTATE CANCER
     Dosage: 4 TABLETS DAILY BY MOUTH
     Route: 048
     Dates: start: 20130726, end: 20141126

REACTIONS (2)
  - Drug ineffective [None]
  - Prostatic specific antigen increased [None]

NARRATIVE: CASE EVENT DATE: 20141126
